FAERS Safety Report 5505788-4 (Version None)
Quarter: 2007Q4

REPORT INFORMATION
  Report Type: 
  Country: None (occurrence: None)
  Receive Date: 20071102
  Receipt Date: 20071029
  Transmission Date: 20080405
  Serious: Yes (Other)
  Sender: FDA-Public Use
  Company Number: US-ROXANE LABORATORIES, INC-2007-BP-23478RO

PATIENT
  Age: 3 Year
  Sex: Male

DRUGS (6)
  1. FLUTICASONE PROPIONATE [Suspect]
     Indication: ASTHMA
     Route: 045
  2. HYDROCORTISONE [Suspect]
     Indication: ECZEMA
     Route: 061
  3. NEOMYCIN [Suspect]
     Indication: ECZEMA
     Route: 061
  4. POLYMYXIN B [Suspect]
     Indication: ECZEMA
     Route: 061
  5. CROMOLYN SODIUM [Suspect]
     Indication: ASTHMA
  6. STEROIDS [Suspect]
     Indication: ASTHMA
     Route: 048

REACTIONS (2)
  - POLYP [None]
  - VOCAL CORD THICKENING [None]
